FAERS Safety Report 20524772 (Version 1)
Quarter: 2022Q1

REPORT INFORMATION
  Report Type: Spontaneous
  Country: DE (occurrence: DE)
  Receive Date: 20220228
  Receipt Date: 20220228
  Transmission Date: 20220423
  Serious: Yes (Death, Hospitalization, Other)
  Sender: FDA-Public Use
  Company Number: None

PATIENT
  Age: 69 Year

DRUGS (5)
  1. TACROLIMUS [Suspect]
     Active Substance: TACROLIMUS
     Indication: Immunosuppressant drug therapy
     Dosage: UNK
     Route: 065
  2. MYCOPHENOLATE MOFETIL [Suspect]
     Active Substance: MYCOPHENOLATE MOFETIL
     Indication: Immunosuppressant drug therapy
     Dosage: UNK
     Route: 065
  3. METHYLPREDNISOLONE [Suspect]
     Active Substance: METHYLPREDNISOLONE
     Indication: Immunosuppressant drug therapy
     Dosage: 2 MG, QD
     Route: 065
  4. METHYLPREDNISOLONE [Suspect]
     Active Substance: METHYLPREDNISOLONE
     Indication: Immunosuppressant drug therapy
     Dosage: 2 MG, QD
     Route: 065
  5. CETUXIMAB [Concomitant]
     Active Substance: CETUXIMAB

REACTIONS (23)
  - Multiple organ dysfunction syndrome [Fatal]
  - Axillary mass [Recovering/Resolving]
  - Limb mass [Recovering/Resolving]
  - Metastases to lymph nodes [Recovering/Resolving]
  - Pneumonitis [Fatal]
  - General physical health deterioration [Fatal]
  - Disease progression [Recovering/Resolving]
  - Metastases to pleura [Recovering/Resolving]
  - Respiratory failure [Fatal]
  - Metastases to spine [Recovering/Resolving]
  - Lung infiltration malignant [Recovering/Resolving]
  - Skin squamous cell carcinoma recurrent [Recovering/Resolving]
  - Sepsis [Fatal]
  - Skin squamous cell carcinoma metastatic [Recovering/Resolving]
  - Ulcer [Recovering/Resolving]
  - Metastases to bone [Recovering/Resolving]
  - Squamous cell carcinoma of skin [Recovering/Resolving]
  - Metastases to spine [Recovering/Resolving]
  - Metastases to pleura [Recovering/Resolving]
  - Disease progression [Unknown]
  - Metastases to lymph nodes [Unknown]
  - Metastases to lung [Recovering/Resolving]
  - Drug ineffective [Unknown]
